FAERS Safety Report 6412635-5 (Version None)
Quarter: 2009Q4

REPORT INFORMATION
  Report Type: 
  Country: None (occurrence: None)
  Receive Date: 20091023
  Receipt Date: 20091014
  Transmission Date: 20100525
  Serious: Yes (Other)
  Sender: FDA-Public Use
  Company Number: PHHY2009IT41378

PATIENT
  Sex: Male

DRUGS (3)
  1. ZOMETA [Suspect]
     Indication: PROSTATE CANCER METASTATIC
     Dosage: 4 MG/5ML
     Route: 042
     Dates: start: 20060901, end: 20080831
  2. EUTIROX [Concomitant]
     Dosage: UNK
     Route: 048
  3. DECAPEPTYL [Concomitant]
     Dosage: UNK
     Route: 042

REACTIONS (1)
  - OSTEOMYELITIS [None]
